FAERS Safety Report 21696018 (Version 1)
Quarter: 2022Q4

REPORT INFORMATION
  Report Type: Spontaneous
  Country: IT (occurrence: IT)
  Receive Date: 20221207
  Receipt Date: 20221207
  Transmission Date: 20230112
  Serious: Yes (Hospitalization)
  Sender: FDA-Public Use
  Company Number: IT-PFIZER INC-PV202200112284

PATIENT
  Sex: Female

DRUGS (3)
  1. AVIBACTAM SODIUM\CEFTAZIDIME [Suspect]
     Active Substance: AVIBACTAM SODIUM\CEFTAZIDIME
     Indication: Pneumonia klebsiella
     Dosage: 2.5 G FOR  3 IN CONTINUOUS INFUSION
     Route: 042
  2. MEROPENEM [Suspect]
     Active Substance: MEROPENEM
     Indication: Pneumonia klebsiella
     Dosage: EXTENDED INFUSION
  3. GENTAMICIN [Suspect]
     Active Substance: GENTAMICIN
     Indication: Pneumonia klebsiella
     Dosage: 8 MG

REACTIONS (4)
  - Brain abscess [Unknown]
  - Nervous system disorder [Unknown]
  - Condition aggravated [Unknown]
  - Drug resistance [Unknown]
